FAERS Safety Report 18592638 (Version 1)
Quarter: 2020Q4

REPORT INFORMATION
  Report Type: Spontaneous
  Country: US (occurrence: US)
  Receive Date: 20201209
  Receipt Date: 20201209
  Transmission Date: 20210114
  Serious: Yes (Hospitalization, Other)
  Sender: FDA-Public Use
  Company Number: US-ADVANZ PHARMA-202011010586

PATIENT

DRUGS (30)
  1. AMITRIPTYLINE [Suspect]
     Active Substance: AMITRIPTYLINE
     Indication: DEPRESSION
     Dosage: UNKNOWN
     Route: 065
  2. DOXYCYCLINE. [Suspect]
     Active Substance: DOXYCYCLINE
     Indication: ROSACEA
     Dosage: UNKNOWN
     Route: 065
  3. MAGNESIUM [Concomitant]
     Active Substance: MAGNESIUM
     Dosage: UNKNOWN
  4. N-ACETYLCYSTEINE [Concomitant]
     Active Substance: ACETYLCYSTEINE
     Dosage: UNKNOWN
  5. TRANYLCYPROMINE [Suspect]
     Active Substance: TRANYLCYPROMINE
     Indication: DEPRESSION
     Dosage: UNKNOWN
     Route: 065
  6. LITHIUM. [Suspect]
     Active Substance: LITHIUM
     Indication: DEPRESSION
     Dosage: UNKNOWN
     Route: 065
  7. LEVOTHYROXINE. [Suspect]
     Active Substance: LEVOTHYROXINE
     Indication: HYPOTHYROIDISM
     Dosage: UNKNOWN
     Route: 065
  8. SERTRALINE [Suspect]
     Active Substance: SERTRALINE HYDROCHLORIDE
     Indication: DEPRESSION
     Dosage: UNKNOWN
     Route: 065
  9. LORAZEPAM. [Suspect]
     Active Substance: LORAZEPAM
     Indication: DEPRESSION
     Dosage: UNKNOWN
     Route: 065
  10. TRYPTOPHAN [Concomitant]
     Active Substance: TRYPTOPHAN
     Dosage: UNKNOWN
  11. METHADONE [Suspect]
     Active Substance: METHADONE HYDROCHLORIDE
     Indication: MIGRAINE
     Dosage: UNKNOWN
     Route: 065
  12. CIPROFLOXACIN. [Suspect]
     Active Substance: CIPROFLOXACIN
     Indication: DYSBIOSIS
     Dosage: UNKNOWN
     Route: 065
  13. RISPERIDONE. [Suspect]
     Active Substance: RISPERIDONE
     Indication: DEPRESSION
     Dosage: UNKNOWN
     Route: 065
  14. VENLAFAXINE [Suspect]
     Active Substance: VENLAFAXINE HYDROCHLORIDE
     Indication: DEPRESSION
     Dosage: UNKNOWN
     Route: 065
  15. METHYLPHENIDATE. [Suspect]
     Active Substance: METHYLPHENIDATE
     Indication: DEPRESSION
     Dosage: UNKNOWN
     Route: 065
  16. TYROSINE [Concomitant]
     Active Substance: TYROSINE
     Dosage: UNKNOWN
  17. BUPROPION. [Suspect]
     Active Substance: BUPROPION
     Indication: DEPRESSION
     Dosage: UNKNOWN
     Route: 065
  18. LEVOTHYROXINE. [Suspect]
     Active Substance: LEVOTHYROXINE
     Dosage: UNKNOWN
     Route: 065
     Dates: start: 2016
  19. FLUOXETINE [Suspect]
     Active Substance: FLUOXETINE HYDROCHLORIDE
     Indication: DEPRESSION
     Dosage: UNKNOWN
     Route: 065
  20. CLONAZEPAM. [Suspect]
     Active Substance: CLONAZEPAM
     Indication: DEPRESSION
     Dosage: UNKNOWN
     Route: 065
  21. DULOXETINE. [Suspect]
     Active Substance: DULOXETINE
     Dosage: UNKNOWN
     Route: 065
     Dates: start: 2015
  22. RHODIOLA ROSEA [Concomitant]
     Active Substance: HERBALS
     Dosage: UNKNOWN
  23. DEPAKOTE [Suspect]
     Active Substance: DIVALPROEX SODIUM
     Indication: DEPRESSION
     Dosage: UNKNOWN
     Route: 065
  24. CLONIDINE. [Suspect]
     Active Substance: CLONIDINE
     Indication: DEPRESSION
     Dosage: UNKNOWN
     Route: 065
  25. DULOXETINE. [Suspect]
     Active Substance: DULOXETINE
     Indication: DEPRESSION
     Dosage: UNKNOWN
     Route: 065
  26. HYDROCODONE + PARACETAMOL [Suspect]
     Active Substance: ACETAMINOPHEN\HYDROCODONE BITARTRATE
     Indication: MIGRAINE
     Dosage: UNKNOWN
     Route: 065
  27. UBIQUINOL [Concomitant]
     Active Substance: UBIQUINOL
     Dosage: UNKNOWN
  28. TRAZODONE [Suspect]
     Active Substance: TRAZODONE HYDROCHLORIDE
     Indication: DEPRESSION
     Dosage: UNKNOWN
     Route: 065
  29. ALPHA LIPOIC ACID [Concomitant]
     Active Substance: .ALPHA.-LIPOIC ACID
     Dosage: UNKNOWN
  30. LORAZEPAM. [Suspect]
     Active Substance: LORAZEPAM
     Dosage: 0.25 MG, QD
     Route: 065
     Dates: start: 2015

REACTIONS (45)
  - Blood cholesterol increased [Unknown]
  - Abdominal distension [Recovered/Resolved]
  - Disturbance in attention [Recovered/Resolved]
  - Intentional overdose [Unknown]
  - Sluggishness [Unknown]
  - Pain [Recovered/Resolved]
  - Sleep disorder [Recovered/Resolved]
  - Substance abuse [Recovered/Resolved]
  - Suicidal ideation [Recovered/Resolved]
  - Intrusive thoughts [Recovered/Resolved]
  - Memory impairment [Recovered/Resolved]
  - Feeling abnormal [Recovered/Resolved]
  - Akathisia [Recovered/Resolved]
  - Loss of libido [Recovered/Resolved]
  - Antidepressant discontinuation syndrome [Recovered/Resolved]
  - Discomfort [Recovered/Resolved]
  - Asthenia [Recovered/Resolved]
  - Constipation [Recovered/Resolved]
  - Fatigue [Recovered/Resolved]
  - Neuropathy peripheral [Recovered/Resolved]
  - Drug dependence [Recovered/Resolved]
  - Food allergy [Unknown]
  - Electronic cigarette user [Unknown]
  - Gastrooesophageal reflux disease [Unknown]
  - Gait inability [Recovered/Resolved]
  - Pain in extremity [Recovered/Resolved]
  - Rosacea [Recovered/Resolved]
  - Tachyphrenia [Recovered/Resolved]
  - Drug resistance [Unknown]
  - Weight increased [Recovered/Resolved]
  - Drug ineffective [Unknown]
  - Condition aggravated [Recovered/Resolved]
  - Exercise tolerance decreased [Recovered/Resolved]
  - Eczema [Unknown]
  - Irritability [Unknown]
  - Dyspepsia [Recovered/Resolved]
  - Thinking abnormal [Recovered/Resolved]
  - Mood swings [Recovered/Resolved]
  - Gastric disorder [Recovered/Resolved]
  - Suicide attempt [Recovered/Resolved]
  - Anger [Unknown]
  - Muscular weakness [Recovered/Resolved]
  - Fear [Recovered/Resolved]
  - Mood altered [Recovered/Resolved]
  - Paraesthesia [Recovered/Resolved]

NARRATIVE: CASE EVENT DATE: 2016
